FAERS Safety Report 6369115-5 (Version None)
Quarter: 2009Q3

REPORT INFORMATION
  Report Type: 
  Country: None (occurrence: None)
  Receive Date: 20090918
  Receipt Date: 20090918
  Transmission Date: 20100115
  Serious: Yes (Life-Threatening, Hospitalization, Disabling)
  Sender: FDA-Public Use
  Company Number: None

PATIENT
  Age: 60 Year
  Sex: Male
  Weight: 74.8435 kg

DRUGS (2)
  1. PEGINTERFERON [Suspect]
     Dosage: UNSURE WEEKLY INTERVENIOUS
     Route: 042
  2. RIBAVIRIN [Suspect]
     Indication: HEPATITIS
     Dosage: 200MG DAILY ORAL
     Route: 048

REACTIONS (2)
  - HYPERTENSION [None]
  - NEUROPATHY PERIPHERAL [None]
